FAERS Safety Report 14683891 (Version 1)
Quarter: 2018Q1

REPORT INFORMATION
  Report Type: Spontaneous
  Country: DE (occurrence: DE)
  Receive Date: 20180327
  Receipt Date: 20180327
  Transmission Date: 20180509
  Serious: Yes (Hospitalization)
  Sender: FDA-Public Use
  Company Number: DE-AUROBINDO-AUR-APL-2018-016576

PATIENT
  Age: 77 Year
  Sex: Male
  Weight: 110 kg

DRUGS (2)
  1. VALSARTAN. [Suspect]
     Active Substance: VALSARTAN
     Indication: CARDIAC FAILURE
     Dosage: 1 DF (SACUBITRIL 49 MG, VALSARTAN 51 MG), BID
     Route: 048
     Dates: start: 20170209, end: 20170714
  2. SACUBITRIL [Suspect]
     Active Substance: SACUBITRIL
     Indication: PRODUCT USED FOR UNKNOWN INDICATION
     Dosage: 1 DF
     Route: 048
     Dates: start: 20170714

REACTIONS (3)
  - General physical health deterioration [Recovered/Resolved with Sequelae]
  - Hyperkalaemia [Recovered/Resolved]
  - Acute kidney injury [Recovered/Resolved]

NARRATIVE: CASE EVENT DATE: 20170714
